FAERS Safety Report 4974176-1 (Version None)
Quarter: 2006Q2

REPORT INFORMATION
  Report Type: 
  Country: None (occurrence: None)
  Receive Date: 20060417
  Receipt Date: 20050131
  Transmission Date: 20061013
  Serious: Yes (Life-Threatening, Disabling)
  Sender: FDA-Public Use
  Company Number: US-MERCK-0502USA00057

PATIENT
  Age: 49 Year
  Sex: Female

DRUGS (2)
  1. VIOXX [Suspect]
     Indication: ARTHRITIS
     Route: 048
     Dates: start: 20030601, end: 20040422
  2. PAXIL [Concomitant]
     Route: 065

REACTIONS (15)
  - ANOREXIA [None]
  - ARTHROPATHY [None]
  - COUGH [None]
  - DIFFICULTY IN WALKING [None]
  - DIZZINESS [None]
  - DYSPHONIA [None]
  - EMOTIONAL DISTRESS [None]
  - FATIGUE [None]
  - LOW DENSITY LIPOPROTEIN INCREASED [None]
  - MALAISE [None]
  - NERVOUSNESS [None]
  - PALPITATIONS [None]
  - PANIC ATTACK [None]
  - SINUSITIS [None]
  - THROMBOSIS [None]
